FAERS Safety Report 23799260 (Version 1)
Quarter: 2024Q2

REPORT INFORMATION
  Report Type: Spontaneous
  Country: US (occurrence: None)
  Receive Date: 20240428
  Receipt Date: 20240428
  Transmission Date: 20240716
  Serious: Yes (Hospitalization)
  Sender: FDA-Public Use
  Company Number: None

PATIENT
  Age: 63 Year
  Sex: Male
  Weight: 85.7 kg

DRUGS (1)
  1. FLECAINIDE ACETATE [Suspect]
     Active Substance: FLECAINIDE ACETATE
     Indication: Atrial fibrillation
     Dates: start: 20230201, end: 20230201

REACTIONS (3)
  - Tachycardia [None]
  - Electrocardiogram QRS complex shortened [None]
  - Hypotension [None]

NARRATIVE: CASE EVENT DATE: 20230201
